FAERS Safety Report 19290005 (Version 2)
Quarter: 2022Q2

REPORT INFORMATION
  Report Type: Report from Study
  Country: CN (occurrence: CN)
  Receive Date: 20210522
  Receipt Date: 20220603
  Transmission Date: 20220720
  Serious: Yes (Death, Hospitalization)
  Sender: FDA-Public Use
  Company Number: CN-NOVARTISPH-NVSC2021CN109111

PATIENT
  Age: 60 Year
  Sex: Female
  Weight: 59 kg

DRUGS (21)
  1. TYKERB [Suspect]
     Active Substance: LAPATINIB DITOSYLATE
     Indication: Breast cancer metastatic
     Dosage: 1500 MG, QD (1250 MG + 250 MG, FORMULATION: TABLET)
     Route: 048
     Dates: start: 20201205, end: 20210217
  2. TYKERB [Suspect]
     Active Substance: LAPATINIB DITOSYLATE
     Dosage: 1500 MG, QD  (1250 MG + 250 MG)
     Route: 048
     Dates: start: 20210226, end: 20210408
  3. TYKERB [Suspect]
     Active Substance: LAPATINIB DITOSYLATE
     Dosage: 1250 MG, QD (1000 MG + 250 MG)
     Route: 048
     Dates: start: 20210421, end: 20210509
  4. CAPECITABINE [Suspect]
     Active Substance: CAPECITABINE
     Indication: Breast cancer metastatic
     Dosage: 750 MG, BID (600 MG + 150 MG)
     Route: 048
     Dates: start: 20201205, end: 20201218
  5. CAPECITABINE [Suspect]
     Active Substance: CAPECITABINE
     Dosage: 1500 MG, BID (1000 MG + 500 MG)
     Route: 048
     Dates: start: 20201205, end: 20201218
  6. CAPECITABINE [Suspect]
     Active Substance: CAPECITABINE
     Dosage: 750 MG, BID (600 MG + 150 MG)
     Route: 048
     Dates: start: 20201226, end: 20210108
  7. CAPECITABINE [Suspect]
     Active Substance: CAPECITABINE
     Dosage: 1500 MG, BID (1000 MG + 500 MG)
     Route: 048
     Dates: start: 20201226, end: 20210108
  8. CAPECITABINE [Suspect]
     Active Substance: CAPECITABINE
     Dosage: 750 MG, BID (600 MG + 150 MG)
     Route: 048
     Dates: start: 20210123, end: 20210205
  9. CAPECITABINE [Suspect]
     Active Substance: CAPECITABINE
     Dosage: 750 MG, BID (600 MG + 150 MG)
     Route: 048
     Dates: start: 20210123, end: 20210205
  10. CAPECITABINE [Suspect]
     Active Substance: CAPECITABINE
     Dosage: 1500 MG, BID (1000 MG + 500 MG)
     Route: 048
     Dates: start: 20210123, end: 20210205
  11. CAPECITABINE [Suspect]
     Active Substance: CAPECITABINE
     Dosage: 1500 MG, BID (1000 MG + 500 MG)
     Route: 048
     Dates: start: 20210123, end: 20210205
  12. CAPECITABINE [Suspect]
     Active Substance: CAPECITABINE
     Dosage: 750 MG, BID (600 MG + 150 MG)
     Route: 048
     Dates: start: 20210226, end: 20210311
  13. CAPECITABINE [Suspect]
     Active Substance: CAPECITABINE
     Dosage: 750 MG, BID (600 MG + 150 MG)
     Route: 048
     Dates: start: 20210226, end: 20210311
  14. CAPECITABINE [Suspect]
     Active Substance: CAPECITABINE
     Dosage: 1500 MG, BID (1000 MG + 500 MG)
     Route: 048
     Dates: start: 20210226, end: 20210311
  15. CAPECITABINE [Suspect]
     Active Substance: CAPECITABINE
     Dosage: 750 MG, BID (600 MG + 150 MG)
     Route: 048
     Dates: start: 20210320, end: 20210402
  16. CAPECITABINE [Suspect]
     Active Substance: CAPECITABINE
     Dosage: 750 MG, BID (600 MG + 150 MG)
     Route: 048
     Dates: start: 20210320, end: 20210402
  17. CAPECITABINE [Suspect]
     Active Substance: CAPECITABINE
     Dosage: 1500 MG, BID (1000 MG + 500 MG)
     Route: 048
     Dates: start: 20210320, end: 20210402
  18. CAPECITABINE [Suspect]
     Active Substance: CAPECITABINE
     Dosage: 750 MG, BID (600 MG + 150 MG)
     Route: 048
     Dates: start: 20210421, end: 20210504
  19. CAPECITABINE [Suspect]
     Active Substance: CAPECITABINE
     Dosage: 750 MG, BID (600 MG + 150 MG)
     Route: 048
     Dates: start: 20210421, end: 20210504
  20. CAPECITABINE [Suspect]
     Active Substance: CAPECITABINE
     Dosage: 1500 MG, BID (1000 MG + 500 MG)
     Route: 048
     Dates: start: 20210421, end: 20210504
  21. NIMODIPINE [Concomitant]
     Active Substance: NIMODIPINE
     Indication: Hypotension
     Dosage: 1 DF, QD
     Route: 065
     Dates: start: 20201205

REACTIONS (5)
  - Anaemia [Fatal]
  - Malignant neoplasm progression [Fatal]
  - Breast cancer metastatic [Fatal]
  - White blood cell count decreased [Unknown]
  - Neutrophil count decreased [Unknown]

NARRATIVE: CASE EVENT DATE: 20210420
